FAERS Safety Report 7017700-X (Version None)
Quarter: 2010Q3

REPORT INFORMATION
  Report Type: 
  Country: None (occurrence: None)
  Receive Date: 20100909
  Receipt Date: 20100805
  Transmission Date: 20110219
  Serious: No
  Sender: FDA-Public Use
  Company Number: 2010SP042741

PATIENT
  Age: 61 Year
  Sex: Female

DRUGS (9)
  1. SAPHRIS [Suspect]
     Indication: BIPOLAR DISORDER
     Dosage: 5 MG ; BID ; PO
     Route: 048
     Dates: start: 20100401
  2. SAPHRIS [Suspect]
     Indication: DEPRESSION
     Dosage: 5 MG ; BID ; PO
     Route: 048
     Dates: start: 20100401
  3. DEPAKOTE [Concomitant]
  4. CLOZAPINE [Concomitant]
  5. RISPERDAL [Concomitant]
  6. SOMA [Concomitant]
  7. PRAVASTATIN [Concomitant]
  8. HYDROCODONE [Concomitant]
  9. REMERON [Concomitant]

REACTIONS (2)
  - INCORRECT ROUTE OF DRUG ADMINISTRATION [None]
  - WHITE BLOOD CELL COUNT INCREASED [None]
